FAERS Safety Report 7042408-4 (Version None)
Quarter: 2010Q4

REPORT INFORMATION
  Report Type: 
  Country: None (occurrence: None)
  Receive Date: 20101013
  Receipt Date: 20090731
  Transmission Date: 20110411
  Serious: No
  Sender: FDA-Public Use
  Company Number: US-ASTRAZENECA-2009UW17588

PATIENT
  Age: 48 Year
  Sex: Male
  Weight: 136.1 kg

DRUGS (5)
  1. SYMBICORT [Suspect]
     Dosage: 60 MCG 4 PUFFS
     Route: 055
  2. SYMBICORT [Suspect]
     Dosage: 160UG
     Route: 055
  3. LIQUID ANTIHISTAMINE [Concomitant]
  4. ASPIRIN [Concomitant]
  5. ACE INHIBITOR [Concomitant]

REACTIONS (5)
  - COUGH [None]
  - DRUG INEFFECTIVE [None]
  - DYSGEUSIA [None]
  - DYSPHONIA [None]
  - HYPERTENSION [None]
